FAERS Safety Report 13724606 (Version 2)
Quarter: 2018Q1

REPORT INFORMATION
  Report Type: Spontaneous
  Country: JP (occurrence: JP)
  Receive Date: 20170706
  Receipt Date: 20180108
  Transmission Date: 20180508
  Serious: Yes (Death)
  Sender: FDA-Public Use
  Company Number: JP-PFIZER INC-2017290586

PATIENT
  Age: 40 Year
  Sex: Male

DRUGS (17)
  1. EFFEXOR [Suspect]
     Active Substance: VENLAFAXINE HYDROCHLORIDE
     Dosage: 150 MG, 1X/DAY
     Route: 048
     Dates: start: 20161004, end: 20161114
  2. BOFUTSUSHOSAN [Concomitant]
     Active Substance: HERBALS
     Dosage: UNK
  3. ZYPREXA ZYDIS [Concomitant]
     Active Substance: OLANZAPINE
     Dosage: 2.5 MG, 1X/DAY
     Dates: start: 20161129, end: 20170227
  4. BELSOMRA [Suspect]
     Active Substance: SUVOREXANT
     Dosage: 20 MG, 1X/DAY
     Route: 048
     Dates: start: 20151201, end: 20151228
  5. ZYPREXA ZYDIS [Concomitant]
     Active Substance: OLANZAPINE
     Dosage: 5 MG, 1X/DAY
     Dates: start: 20150623, end: 20160718
  6. ZYPREXA ZYDIS [Concomitant]
     Active Substance: OLANZAPINE
     Dosage: 5 MG, 1X/DAY
     Dates: start: 20160802, end: 20161128
  7. ZYPREXA ZYDIS [Concomitant]
     Active Substance: OLANZAPINE
     Dosage: 7.5 MG, 1X/DAY
     Dates: start: 20160719, end: 20160801
  8. EFFEXOR [Suspect]
     Active Substance: VENLAFAXINE HYDROCHLORIDE
     Indication: MALAISE
     Dosage: 75 MG, 1X/DAY
     Route: 048
     Dates: start: 20160920, end: 20161003
  9. EFFEXOR [Suspect]
     Active Substance: VENLAFAXINE HYDROCHLORIDE
     Dosage: 187.5 MG, 1X/DAY
     Route: 048
     Dates: start: 20161115, end: 20161128
  10. EFFEXOR [Suspect]
     Active Substance: VENLAFAXINE HYDROCHLORIDE
     Indication: DISTURBANCE IN ATTENTION
     Dosage: 37.5 MG, 1X/DAY
     Route: 048
     Dates: start: 20160913, end: 20160919
  11. EFFEXOR [Suspect]
     Active Substance: VENLAFAXINE HYDROCHLORIDE
     Dosage: 225 MG, 1X/DAY
     Route: 048
     Dates: start: 20161129, end: 20170327
  12. EFFEXOR [Suspect]
     Active Substance: VENLAFAXINE HYDROCHLORIDE
     Dosage: 187.5 MG, 1X/DAY
     Route: 048
     Dates: start: 20170328, end: 20170605
  13. BELSOMRA [Suspect]
     Active Substance: SUVOREXANT
     Dosage: 15 MG, 1X/DAY
     Route: 048
     Dates: start: 20151229
  14. ZYPREXA ZYDIS [Concomitant]
     Active Substance: OLANZAPINE
     Dosage: 1.25 MG, 1X/DAY
     Dates: start: 20170227, end: 20170313
  15. LAC-B [Concomitant]
     Active Substance: BIFIDOBACTERIUM SPP.
     Dosage: UNK
  16. EFFEXOR [Suspect]
     Active Substance: VENLAFAXINE HYDROCHLORIDE
     Dosage: 150 MG, 1X/DAY
     Route: 048
     Dates: start: 20170606
  17. BERIZYM /01945301/ [Concomitant]
     Dosage: UNK

REACTIONS (2)
  - Completed suicide [Fatal]
  - Sympathomimetic effect [Recovering/Resolving]

NARRATIVE: CASE EVENT DATE: 20170620
